FAERS Safety Report 5326826-8 (Version None)
Quarter: 2007Q2

REPORT INFORMATION
  Report Type: 
  Country: None (occurrence: None)
  Receive Date: 20070516
  Receipt Date: 20070504
  Transmission Date: 20071010
  Serious: Yes (Other)
  Sender: FDA-Public Use
  Company Number: GB-MERCK-0705GBR00025

PATIENT
  Age: 32 Year
  Sex: Female

DRUGS (10)
  1. HYDROCORTONE [Suspect]
     Route: 048
  2. HYDROCORTONE [Suspect]
     Route: 048
  3. HYDROCORTONE [Suspect]
     Route: 048
  4. INSULIN, NEUTRAL [Suspect]
     Route: 065
  5. INSULIN, NEUTRAL [Suspect]
     Route: 065
  6. INSULIN, NEUTRAL [Suspect]
     Route: 065
  7. INSULIN, NEUTRAL [Suspect]
     Route: 065
  8. BETAMETHASONE [Suspect]
     Indication: PROPHYLAXIS
     Route: 030
  9. INSULIN, ISOPHANE [Suspect]
     Indication: DIABETES MELLITUS INSULIN-DEPENDENT
     Route: 065
  10. INSULIN, ISOPHANE [Suspect]
     Route: 065

REACTIONS (19)
  - ADRENAL INSUFFICIENCY [None]
  - ANOREXIA [None]
  - BLOOD CORTISOL DECREASED [None]
  - BLOOD PROLACTIN DECREASED [None]
  - DEPRESSED MOOD [None]
  - DRUG EXPOSURE DURING PREGNANCY [None]
  - FATIGUE [None]
  - FEELING ABNORMAL [None]
  - FOETAL MOVEMENTS DECREASED [None]
  - HEADACHE [None]
  - HYPERGLYCAEMIA [None]
  - HYPERTENSION [None]
  - HYPOGLYCAEMIA [None]
  - HYPOPITUITARISM [None]
  - OEDEMA PERIPHERAL [None]
  - PHOTOPHOBIA [None]
  - PITUITARY INFARCTION [None]
  - PROTEINURIA [None]
  - SUBARACHNOID HAEMORRHAGE [None]
